FAERS Safety Report 8049689-9 (Version None)
Quarter: 2012Q1

REPORT INFORMATION
  Report Type: 
  Country: None (occurrence: None)
  Receive Date: 20120117
  Receipt Date: 20120111
  Transmission Date: 20120608
  Serious: Yes (Death, Hospitalization)
  Sender: FDA-Public Use
  Company Number: US-GLAXOSMITHKLINE-A0960991A

PATIENT
  Age: 87 Year
  Sex: Male

DRUGS (1)
  1. ADVAIR DISKUS 100/50 [Suspect]
     Indication: CHRONIC OBSTRUCTIVE PULMONARY DISEASE
     Dosage: 1PUFF TWICE PER DAY
     Route: 055

REACTIONS (6)
  - DEATH [None]
  - CYSTITIS [None]
  - PNEUMONIA [None]
  - HIP FRACTURE [None]
  - FALL [None]
  - CEREBROVASCULAR ACCIDENT [None]
